FAERS Safety Report 8844366 (Version 2)
Quarter: 2013Q2

REPORT INFORMATION
  Report Type: Spontaneous
  Country: FR (occurrence: FR)
  Receive Date: 20121017
  Receipt Date: 20130507
  Transmission Date: 20140414
  Serious: Yes (Death, Congenital Anomaly)
  Sender: FDA-Public Use
  Company Number: FR-SANOFI-AVENTIS-2012SA074117

PATIENT
  Sex: Male

DRUGS (1)
  1. PLAQUENIL [Suspect]
     Indication: MIXED CONNECTIVE TISSUE DISEASE
     Route: 064
     Dates: start: 20110808, end: 201109

REACTIONS (2)
  - Skeletal dysplasia [Fatal]
  - Foetal exposure during pregnancy [Fatal]
